FAERS Safety Report 4488891-X (Version None)
Quarter: 2004Q4

REPORT INFORMATION
  Report Type: 
  Country: None (occurrence: None)
  Receive Date: 20041029
  Receipt Date: 20041022
  Transmission Date: 20050328
  Serious: Yes (Life-Threatening)
  Sender: FDA-Public Use
  Company Number: GB-MERCK-0410GBR00281

PATIENT
  Age: 70 Year
  Sex: Male
  Weight: 75 kg

DRUGS (5)
  1. VIOXX [Suspect]
     Indication: ANKYLOSING SPONDYLITIS
     Route: 048
     Dates: end: 20040817
  2. ASPIRIN [Concomitant]
     Route: 048
  3. CLOPIDOGREL BISULFATE [Concomitant]
     Route: 048
  4. BISOPROLOL [Concomitant]
     Route: 048
  5. ATORVASTATIN CALCIUM [Concomitant]
     Route: 048

REACTIONS (1)
  - MYOCARDIAL INFARCTION [None]
